FAERS Safety Report 9419884 (Version 1)
Quarter: 2013Q3

REPORT INFORMATION
  Report Type: Spontaneous
  Country: US (occurrence: None)
  Receive Date: 20130723
  Receipt Date: 20130723
  Transmission Date: 20140515
  Serious: Yes (Hospitalization, Other)
  Sender: FDA-Public Use
  Company Number: None

PATIENT
  Age: 77 Year
  Sex: Female
  Weight: 71.85 kg

DRUGS (2)
  1. INVOKANA [Suspect]
     Dosage: EACH MORNING
     Route: 048
     Dates: start: 20130601, end: 20130619
  2. INVOKANA [Suspect]
     Dosage: EACH MORNING
     Route: 048

REACTIONS (1)
  - Diabetic ketoacidosis [None]
